FAERS Safety Report 9138246 (Version 1)
Quarter: 2013Q1

REPORT INFORMATION
  Report Type: Spontaneous
  Country: TR (occurrence: TR)
  Receive Date: 20130305
  Receipt Date: 20130305
  Transmission Date: 20140127
  Serious: Yes (Other)
  Sender: FDA-Public Use
  Company Number: TR-AMGEN-TURSP2013014324

PATIENT
  Age: 49 Year
  Sex: Female

DRUGS (2)
  1. ENBREL [Suspect]
     Indication: ANKYLOSING SPONDYLITIS
     Dosage: 25 MG, CYCLIC;PER 10 DAYS
     Route: 058
     Dates: start: 20091105, end: 201111
  2. ENBREL [Suspect]
     Dosage: 25 MG, CYCLIC;PER 10 DAYS
     Route: 058
     Dates: start: 201205

REACTIONS (2)
  - Accident at home [Not Recovered/Not Resolved]
  - Upper limb fracture [Not Recovered/Not Resolved]
